FAERS Safety Report 7407558-9 (Version None)
Quarter: 2011Q2

REPORT INFORMATION
  Report Type: 
  Country: None (occurrence: None)
  Receive Date: 20110406
  Receipt Date: 20110406
  Transmission Date: 20111010
  Serious: Yes (Hospitalization)
  Sender: FDA-Public Use
  Company Number: None

PATIENT
  Sex: Male
  Weight: 58.5 kg

DRUGS (6)
  1. FAMOTIDINE [Concomitant]
  2. BLM [Concomitant]
  3. SUCRALFATE [Concomitant]
  4. TAXOL [Suspect]
     Dosage: 365 MG
     Dates: end: 20110328
  5. CARBOPLATIN [Suspect]
     Dosage: 940 MG
     Dates: end: 20110328
  6. DECADRON [Concomitant]

REACTIONS (2)
  - OESOPHAGITIS [None]
  - ABDOMINAL PAIN [None]
